FAERS Safety Report 6418069-1 (Version None)
Quarter: 2009Q4

REPORT INFORMATION
  Report Type: 
  Country: None (occurrence: None)
  Receive Date: 20091028
  Receipt Date: 20091021
  Transmission Date: 20100525
  Serious: Yes (Death)
  Sender: FDA-Public Use
  Company Number: TW-BAXTER-2009BH014973

PATIENT
  Sex: Female

DRUGS (3)
  1. DIANEAL [Suspect]
     Indication: PERITONEAL DIALYSIS
     Route: 033
     Dates: start: 20090901, end: 20090101
  2. DIANEAL [Suspect]
     Route: 033
     Dates: start: 20090901, end: 20090101
  3. EXTRANEAL [Suspect]
     Indication: PERITONEAL DIALYSIS
     Route: 033
     Dates: start: 20090901, end: 20090101

REACTIONS (2)
  - SEPSIS [None]
  - SYSTEMIC LUPUS ERYTHEMATOSUS [None]
